FAERS Safety Report 9625744 (Version 1)
Quarter: 2013Q4

REPORT INFORMATION
  Report Type: Spontaneous
  Country: US (occurrence: None)
  Receive Date: 20131015
  Receipt Date: 20131015
  Transmission Date: 20140711
  Serious: Yes (Disabling)
  Sender: FDA-Public Use
  Company Number: None

PATIENT
  Age: 50 Year
  Sex: Female
  Weight: 78.93 kg

DRUGS (1)
  1. PREPOPIK [Suspect]
     Indication: COLONOSCOPY
     Dosage: 2 PACKET AS NEEDED TAKEN BY MOUTH
     Route: 048
     Dates: start: 20130919, end: 20130920

REACTIONS (5)
  - Ear pruritus [None]
  - Feeling hot [None]
  - Ear swelling [None]
  - Urticaria [None]
  - Rash [None]
